FAERS Safety Report 7829046-8 (Version None)
Quarter: 2011Q4

REPORT INFORMATION
  Report Type: 
  Country: None (occurrence: None)
  Receive Date: 20111020
  Receipt Date: 20111007
  Transmission Date: 20120403
  Serious: Yes (Death, Hospitalization)
  Sender: FDA-Public Use
  Company Number: US-MYLANLABS-2011S1021356

PATIENT
  Age: 38 Year
  Sex: Female

DRUGS (4)
  1. CYCLOSPORINE [Suspect]
     Indication: GRAFT VERSUS HOST DISEASE
     Dosage: DOSE ADJUSTED TO MAINTAIN CICLOSPORIN CONCENTRATION IN THERAPEUTIC RANGE (200-400 NG/ML).
     Route: 041
  2. NEORAL [Suspect]
     Indication: GRAFT VERSUS HOST DISEASE
     Dosage: ADMINISTERED VIA NASOGASTRIC TUBE.
  3. METHOTREXATE [Suspect]
     Indication: GRAFT VERSUS HOST DISEASE
     Dosage: ON POSTOPERATIVE DAYS 1, 3 AND 6.
     Route: 040
  4. METHYLPREDNISOLONE [Concomitant]
     Indication: IDIOPATHIC PNEUMONIA SYNDROME
     Route: 042

REACTIONS (7)
  - RENAL FAILURE [None]
  - IDIOPATHIC PNEUMONIA SYNDROME [None]
  - CLONUS [None]
  - CONVULSION [None]
  - GASTROINTESTINAL TOXICITY [None]
  - ACCIDENTAL OVERDOSE [None]
  - ACUTE RESPIRATORY DISTRESS SYNDROME [None]
